FAERS Safety Report 19849521 (Version 1)
Quarter: 2021Q3

REPORT INFORMATION
  Report Type: Spontaneous
  Country: AR (occurrence: AR)
  Receive Date: 20210918
  Receipt Date: 20210918
  Transmission Date: 20211014
  Serious: Yes (Other)
  Sender: FDA-Public Use
  Company Number: PHHY2019AR203371

PATIENT
  Sex: Male

DRUGS (2)
  1. ENTRESTO [Suspect]
     Active Substance: SACUBITRIL\VALSARTAN
     Indication: CONGESTIVE CARDIOMYOPATHY
     Dosage: UNK UNK, QD (2 OF 50MG)
     Route: 065
  2. ENTRESTO [Suspect]
     Active Substance: SACUBITRIL\VALSARTAN
     Dosage: UNK UNK, QD (2 OF 100MG)
     Route: 065

REACTIONS (5)
  - Product use in unapproved indication [Unknown]
  - Blood triglycerides increased [Recovering/Resolving]
  - Drug intolerance [Unknown]
  - Malaise [Recovering/Resolving]
  - Ejection fraction abnormal [Unknown]
